FAERS Safety Report 16825152 (Version 1)
Quarter: 2019Q3

REPORT INFORMATION
  Report Type: Spontaneous
  Country: CA (occurrence: CA)
  Receive Date: 20190919
  Receipt Date: 20190919
  Transmission Date: 20191005
  Serious: Yes (Other)
  Sender: FDA-Public Use
  Company Number: PHHY2019CA214875

PATIENT
  Sex: Female

DRUGS (6)
  1. LEVONORGESTREL. [Suspect]
     Active Substance: LEVONORGESTREL
     Indication: PRODUCT USED FOR UNKNOWN INDICATION
     Dosage: UNK
     Route: 015
  2. COSENTYX [Suspect]
     Active Substance: SECUKINUMAB
     Indication: PRODUCT USED FOR UNKNOWN INDICATION
     Dosage: 300 MG, UNK
     Route: 058
     Dates: start: 201707
  3. NAPROXEN. [Suspect]
     Active Substance: NAPROXEN
     Indication: PRODUCT USED FOR UNKNOWN INDICATION
     Dosage: 500 MG, BID (PRN)
     Route: 048
  4. VITAMIN D3 [Suspect]
     Active Substance: CHOLECALCIFEROL
     Indication: PRODUCT USED FOR UNKNOWN INDICATION
     Dosage: 2000 IU, QD
     Route: 048
  5. DULOXETINE. [Suspect]
     Active Substance: DULOXETINE
     Indication: PRODUCT USED FOR UNKNOWN INDICATION
     Dosage: 30 MG, QD
     Route: 048
  6. AXERT [Suspect]
     Active Substance: ALMOTRIPTAN MALATE
     Indication: MIGRAINE
     Dosage: 12.5 MG, UNK (PRN)
     Route: 048

REACTIONS (31)
  - Neck pain [Not Recovered/Not Resolved]
  - Depression [Unknown]
  - Palpitations [Unknown]
  - Sacroiliitis [Unknown]
  - Spinal pain [Unknown]
  - Pain in jaw [Unknown]
  - Arthralgia [Unknown]
  - Temporomandibular joint syndrome [Unknown]
  - Joint stiffness [Unknown]
  - Disease progression [Unknown]
  - Dactylitis [Unknown]
  - General physical health deterioration [Unknown]
  - Inflammation [Unknown]
  - Back pain [Unknown]
  - Joint range of motion decreased [Unknown]
  - Synovial disorder [Unknown]
  - Nasal dryness [Not Recovered/Not Resolved]
  - Drug ineffective [Unknown]
  - Joint ankylosis [Unknown]
  - Blood pressure systolic increased [Unknown]
  - Pain [Unknown]
  - Night sweats [Unknown]
  - Bacterial vaginosis [Unknown]
  - Juvenile idiopathic arthritis [Unknown]
  - Muscle spasms [Unknown]
  - Insomnia [Unknown]
  - Musculoskeletal stiffness [Unknown]
  - Fungal infection [Unknown]
  - Muscle atrophy [Unknown]
  - Anxiety [Unknown]
  - Aphthous ulcer [Unknown]
